FAERS Safety Report 12959733 (Version 1)
Quarter: 2016Q4

REPORT INFORMATION
  Report Type: Spontaneous
  Country: US (occurrence: US)
  Receive Date: 20161118
  Receipt Date: 20161118
  Transmission Date: 20170207
  Serious: Yes (Life-Threatening, Disabling, Other)
  Sender: FDA-Public Use
  Company Number: None

PATIENT
  Age: 27 Year
  Sex: Male
  Weight: 72 kg

DRUGS (4)
  1. ADULT MULTI VITAMIN [Concomitant]
  2. ADDERALL [Concomitant]
     Active Substance: AMPHETAMINE ASPARTATE\AMPHETAMINE SULFATE\DEXTROAMPHETAMINE SACCHARATE\DEXTROAMPHETAMINE SULFATE
  3. VITAMIN D [Concomitant]
     Active Substance: CHOLECALCIFEROL
  4. DEXTROAMPHET SACCHARAT, AMPHET ASPARTATE, DEXTROAMPHET SULFATE AND AMPHET SULFAT [Suspect]
     Active Substance: AMPHETAMINE ASPARTATE\AMPHETAMINE SULFATE\DEXTROAMPHETAMINE SACCHARATE\DEXTROAMPHETAMINE SULFATE
     Indication: ATTENTION DEFICIT/HYPERACTIVITY DISORDER
     Dosage: ?          QUANTITY:16 TABLET(S);?
     Route: 048
     Dates: start: 20161114, end: 20161118

REACTIONS (7)
  - Hyperhidrosis [None]
  - Product quality issue [None]
  - Bradyphrenia [None]
  - Thinking abnormal [None]
  - Heart rate increased [None]
  - Nervousness [None]
  - Tension headache [None]

NARRATIVE: CASE EVENT DATE: 20161114
